FAERS Safety Report 12819672 (Version 1)
Quarter: 2016Q4

REPORT INFORMATION
  Report Type: Report from Study
  Country: MX (occurrence: MX)
  Receive Date: 20161006
  Receipt Date: 20161006
  Transmission Date: 20170207
  Serious: Yes (Other)
  Sender: FDA-Public Use
  Company Number: PHHY2016MX137623

PATIENT
  Sex: Male

DRUGS (1)
  1. ULTIBRO BREEZHALER [Suspect]
     Active Substance: GLYCOPYRRONIUM\INDACATEROL
     Indication: NEOPLASM PROPHYLAXIS
     Dosage: 1 DF (110/50 UG), QD
     Route: 065

REACTIONS (5)
  - Emphysema [Unknown]
  - Neoplasm malignant [Unknown]
  - Drug prescribing error [Recovered/Resolved]
  - Feeling abnormal [Unknown]
  - Product use issue [Recovered/Resolved]
